FAERS Safety Report 13678815 (Version 2)
Quarter: 2017Q3

REPORT INFORMATION
  Report Type: Spontaneous
  Country: DE (occurrence: DE)
  Receive Date: 20170622
  Receipt Date: 20170725
  Transmission Date: 20171127
  Serious: Yes (Other)
  Sender: FDA-Public Use
  Company Number: GXKR2017DE003265

PATIENT
  Age: 60 Year
  Sex: Male
  Weight: 78 kg

DRUGS (3)
  1. DOXYHEXAL [Suspect]
     Active Substance: DOXYCYCLINE
     Indication: BORRELIA TEST POSITIVE
     Dosage: 200 MG, QD
     Route: 048
     Dates: start: 20170528, end: 20170617
  2. LEVETIRACETAM. [Suspect]
     Active Substance: LEVETIRACETAM
     Dosage: 1000 MG, TWICE DAILY
     Route: 048
  3. LEVETIRACETAM. [Suspect]
     Active Substance: LEVETIRACETAM
     Indication: PROPHYLAXIS
     Dosage: 750 MG, TWICE DAILY
     Route: 048

REACTIONS (3)
  - Skin abrasion [Unknown]
  - Epilepsy [Recovered/Resolved]
  - Loss of consciousness [Unknown]

NARRATIVE: CASE EVENT DATE: 20170608
